FAERS Safety Report 13294861 (Version 4)
Quarter: 2020Q3

REPORT INFORMATION
  Report Type: Spontaneous
  Country: US (occurrence: US)
  Receive Date: 20170303
  Receipt Date: 20200806
  Transmission Date: 20201102
  Serious: Yes (Death, Hospitalization)
  Sender: FDA-Public Use
  Company Number: US-JNJFOC-20170213001

PATIENT
  Age: 88 Year
  Sex: Male

DRUGS (3)
  1. XARELTO [Suspect]
     Active Substance: RIVAROXABAN
     Indication: ATRIAL FIBRILLATION
     Dosage: 5 MG AND 10 MG?THERAPY END DATE: /FEB/2015
     Route: 048
     Dates: start: 201310
  2. XARELTO [Suspect]
     Active Substance: RIVAROXABAN
     Indication: THROMBOSIS PROPHYLAXIS
  3. XARELTO [Suspect]
     Active Substance: RIVAROXABAN
     Indication: CEREBROVASCULAR ACCIDENT PROPHYLAXIS

REACTIONS (4)
  - Lower gastrointestinal haemorrhage [Fatal]
  - Blood urine present [Recovered/Resolved]
  - Off label use [Unknown]
  - Prescribed underdose [Unknown]

NARRATIVE: CASE EVENT DATE: 201310
